FAERS Safety Report 9398240 (Version 1)
Quarter: 2013Q3

REPORT INFORMATION
  Report Type: Spontaneous
  Country: US (occurrence: US)
  Receive Date: 20130712
  Receipt Date: 20130712
  Transmission Date: 20140515
  Serious: No
  Sender: FDA-Public Use
  Company Number: US-GLAXOSMITHKLINE-A0998184A

PATIENT
  Age: 85 Year
  Sex: Female

DRUGS (4)
  1. FLOVENT [Suspect]
     Indication: ILL-DEFINED DISORDER
     Dosage: 2PUFF TWICE PER DAY
     Route: 055
     Dates: start: 20121016
  2. MILK OF MAGNESIA [Concomitant]
  3. BLOOD PRESSURE MEDICATION [Concomitant]
  4. MULTIPLE MEDICATIONS [Concomitant]

REACTIONS (3)
  - Frequent bowel movements [Not Recovered/Not Resolved]
  - Diarrhoea [Unknown]
  - Asthenia [Recovered/Resolved]
